FAERS Safety Report 9532003 (Version 1)
Quarter: 2013Q2

REPORT INFORMATION
  Report Type: Spontaneous
  Country: US (occurrence: None)
  Receive Date: 20130403
  Receipt Date: 20130403
  Transmission Date: 20140414
  Serious: Yes (Hospitalization)
  Sender: FDA-Public Use
  Company Number: US-2012-10502

PATIENT
  Age: 66 Year
  Sex: Male

DRUGS (4)
  1. BUSULFEX [Suspect]
     Indication: LYMPHOMA
     Dosage: 213 MG MILLIGRAM(S), 3 HOUR INFUSION DAILY, INTRAVENOUS
     Route: 042
     Dates: start: 20120411, end: 20120414
  2. MELPHALAN [Concomitant]
  3. VELCADE (BORTEZOMIB) [Concomitant]
  4. HEPARIN [Concomitant]

REACTIONS (8)
  - Sepsis [None]
  - Chest pain [None]
  - Rash [None]
  - Oropharyngeal pain [None]
  - Mucosal inflammation [None]
  - Dysphagia [None]
  - Dyspnoea [None]
  - Oral discharge [None]
